FAERS Safety Report 5240635-X (Version None)
Quarter: 2007Q1

REPORT INFORMATION
  Report Type: 
  Country: None (occurrence: None)
  Receive Date: 20070219
  Receipt Date: 20070207
  Transmission Date: 20070707
  Serious: Yes (Life-Threatening, Hospitalization, Other)
  Sender: FDA-Public Use
  Company Number: US-MERCK-0611USA01321

PATIENT
  Age: 48 Year
  Sex: Female
  Weight: 61 kg

DRUGS (2)
  1. VYTORIN [Suspect]
     Indication: BLOOD CHOLESTEROL INCREASED
     Route: 048
     Dates: start: 20051101, end: 20060601
  2. VYTORIN [Suspect]
     Indication: BLOOD TRIGLYCERIDES INCREASED
     Route: 048
     Dates: start: 20051101, end: 20060601

REACTIONS (1)
  - HEPATITIS CHOLESTATIC [None]
